FAERS Safety Report 8991255 (Version 2)
Quarter: 2013Q2

REPORT INFORMATION
  Report Type: Report from Study
  Country: CA (occurrence: CA)
  Receive Date: 20121231
  Receipt Date: 20130408
  Transmission Date: 20140414
  Serious: Yes (Hospitalization, Other)
  Sender: FDA-Public Use
  Company Number: CA-ROCHE-1168672

PATIENT
  Age: 33 Year
  Sex: Female
  Weight: 136 kg

DRUGS (8)
  1. OMALIZUMAB [Suspect]
     Indication: ASTHMA
     Route: 058
     Dates: start: 20090922
  2. OMALIZUMAB [Suspect]
     Route: 058
     Dates: start: 20091020
  3. OMALIZUMAB [Suspect]
     Route: 058
     Dates: start: 20091229
  4. OMALIZUMAB [Suspect]
     Route: 058
     Dates: start: 20071127
  5. OMALIZUMAB [Suspect]
     Route: 065
     Dates: start: 20120725
  6. OXEZE [Concomitant]
     Indication: PRODUCT USED FOR UNKNOWN INDICATION
     Route: 065
  7. PREDNISONE [Concomitant]
     Indication: PRODUCT USED FOR UNKNOWN INDICATION
     Route: 065
  8. ALVESCO [Concomitant]
     Route: 065

REACTIONS (10)
  - Bronchitis [Recovering/Resolving]
  - Superinfection [Unknown]
  - Nasopharyngitis [Unknown]
  - Hypersensitivity [Unknown]
  - Asthma [Unknown]
  - Heart rate increased [Unknown]
  - Hyperaesthesia [Unknown]
  - Sinusitis [Unknown]
  - Eczema [Unknown]
  - Rash macular [Unknown]
